FAERS Safety Report 8853043 (Version 1)
Quarter: 2012Q4

REPORT INFORMATION
  Report Type: 
  Country: US (occurrence: US)
  Receive Date: 20121022
  Receipt Date: 20121022
  Transmission Date: 20130627
  Serious: No
  Sender: FDA-Public Use
  Company Number: US-PFIZER INC-2012261323

PATIENT
  Age: 64 Year
  Sex: Female

DRUGS (3)
  1. CARDURA [Suspect]
     Dosage: UNK
  2. TAMOXIFEN [Suspect]
     Dosage: UNK
  3. COZAAR [Suspect]
     Dosage: UNK

REACTIONS (1)
  - Drug hypersensitivity [Unknown]
